FAERS Safety Report 22729266 (Version 2)
Quarter: 2023Q4

REPORT INFORMATION
  Report Type: Spontaneous
  Country: US (occurrence: US)
  Receive Date: 20230720
  Receipt Date: 20231109
  Transmission Date: 20240110
  Serious: Yes (Hospitalization)
  Sender: FDA-Public Use
  Company Number: US-BRISTOL-MYERS SQUIBB COMPANY-2023-102296

PATIENT
  Age: 76 Year
  Sex: Female

DRUGS (1)
  1. REVLIMID [Suspect]
     Active Substance: LENALIDOMIDE
     Indication: Plasma cell myeloma
     Dosage: DOSE:15, QD 21 D ON 7 D OFF
     Route: 048

REACTIONS (3)
  - Stomatitis [Unknown]
  - Asthenia [Unknown]
  - Malnutrition [Unknown]

NARRATIVE: CASE EVENT DATE: 20230310
